FAERS Safety Report 9403797 (Version 1)
Quarter: 2013Q3

REPORT INFORMATION
  Report Type: Spontaneous
  Country: FR (occurrence: None)
  Receive Date: 20130712
  Receipt Date: 20130712
  Transmission Date: 20140515
  Serious: Yes (Hospitalization)
  Sender: FDA-Public Use
  Company Number: FR-LHC-2013030

PATIENT
  Age: 20 Year
  Sex: Male

DRUGS (1)
  1. NITROUS OXIDE [Suspect]
     Indication: PRODUCT USED FOR UNKNOWN INDICATION
     Route: 055

REACTIONS (2)
  - Guillain-Barre syndrome [None]
  - Subacute combined cord degeneration [None]
